FAERS Safety Report 16071793 (Version 1)
Quarter: 2019Q1

REPORT INFORMATION
  Report Type: Spontaneous
  Country: CH (occurrence: CH)
  Receive Date: 20190314
  Receipt Date: 20190314
  Transmission Date: 20190418
  Serious: Yes (Life-Threatening)
  Sender: FDA-Public Use
  Company Number: CH-GUERBET-CH-20190012

PATIENT
  Age: 47 Year
  Sex: Female
  Weight: 100 kg

DRUGS (1)
  1. DOTAREM [Suspect]
     Active Substance: GADOTERATE MEGLUMINE
     Indication: NUCLEAR MAGNETIC RESONANCE IMAGING
     Route: 042
     Dates: start: 20190306, end: 20190306

REACTIONS (3)
  - Dyspnoea [Unknown]
  - Shock [Unknown]
  - Erythema [Unknown]

NARRATIVE: CASE EVENT DATE: 20190306
